FAERS Safety Report 14527192 (Version 1)
Quarter: 2018Q1

REPORT INFORMATION
  Report Type: Spontaneous
  Country: US (occurrence: US)
  Receive Date: 20180213
  Receipt Date: 20180213
  Transmission Date: 20180509
  Serious: Yes (Disabling, Other)
  Sender: FDA-Public Use
  Company Number: US-PFIZER INC-2018060910

PATIENT
  Age: 34 Year
  Sex: Female
  Weight: 79 kg

DRUGS (1)
  1. PREMARIN [Suspect]
     Active Substance: ESTROGENS, CONJUGATED
     Indication: HYSTERECTOMY
     Dosage: 1.25 MG, 4X/DAY
     Route: 048

REACTIONS (9)
  - Joint injury [Unknown]
  - Intervertebral disc protrusion [Unknown]
  - Fall [Unknown]
  - Gait disturbance [Unknown]
  - Back injury [Unknown]
  - Limb crushing injury [Unknown]
  - Muscle strain [Unknown]
  - Intervertebral disc injury [Unknown]
  - Limb injury [Unknown]

NARRATIVE: CASE EVENT DATE: 1992
